FAERS Safety Report 5193645-5 (Version None)
Quarter: 2006Q4

REPORT INFORMATION
  Report Type: 
  Country: None (occurrence: None)
  Receive Date: 20061222
  Receipt Date: 20061212
  Transmission Date: 20070319
  Serious: Yes (Other)
  Sender: FDA-Public Use
  Company Number: 06121953

PATIENT
  Sex: Male

DRUGS (1)
  1. HYDROCORTISONE VALERATE [Suspect]
     Dosage: TOPICAL
     Route: 061

REACTIONS (3)
  - BURNING SENSATION [None]
  - LIP DISCOLOURATION [None]
  - LIP DISORDER [None]
